FAERS Safety Report 6937341-X (Version None)
Quarter: 2010Q3

REPORT INFORMATION
  Report Type: 
  Country: None (occurrence: None)
  Receive Date: 20100823
  Receipt Date: 20100817
  Transmission Date: 20110219
  Serious: Yes (Hospitalization, Disabling)
  Sender: FDA-Public Use
  Company Number: JP-B.I. PHARMACEUTICALS,INC./RIDGEFIELD-2010-BP-07705NB

PATIENT
  Sex: Male
  Weight: 61 kg

DRUGS (3)
  1. MICOMBI COMBINATION [Suspect]
     Indication: HYPERTENSION
     Dosage: 1DF
     Route: 048
     Dates: start: 20091215, end: 20100703
  2. ANTIHYPERTENSIVES [Suspect]
     Dosage: 1 DF
     Route: 048
     Dates: start: 20091215, end: 20100703
  3. SELARA [Suspect]
     Dosage: 1 DF
     Route: 048
     Dates: start: 20091215, end: 20100703

REACTIONS (2)
  - HYPONATRAEMIA [None]
  - NASOPHARYNGITIS [None]
